FAERS Safety Report 19032859 (Version 1)
Quarter: 2021Q1

REPORT INFORMATION
  Report Type: Spontaneous
  Country: US (occurrence: US)
  Receive Date: 20210319
  Receipt Date: 20210319
  Transmission Date: 20210420
  Serious: No
  Sender: FDA-Public Use
  Company Number: US-THERAPEUTICSMD-2020TMD05698

PATIENT
  Sex: Female

DRUGS (3)
  1. IMVEXXY [Suspect]
     Active Substance: ESTRADIOL
     Indication: DYSPAREUNIA
     Dosage: ^STARTER PACK^
     Dates: start: 2019
  2. IMVEXXY [Suspect]
     Active Substance: ESTRADIOL
     Dosage: ^STARTER PACK,^ 1X/DAY
     Dates: start: 202012
  3. IMVEXXY [Suspect]
     Active Substance: ESTRADIOL
     Dosage: ^MAINTENANCE DOSING^

REACTIONS (3)
  - Blood oestrogen decreased [Unknown]
  - Vulvovaginal dryness [Unknown]
  - Off label use [Not Recovered/Not Resolved]

NARRATIVE: CASE EVENT DATE: 2019
